FAERS Safety Report 6129691-4 (Version None)
Quarter: 2009Q1

REPORT INFORMATION
  Report Type: 
  Country: None (occurrence: None)
  Receive Date: 20090323
  Receipt Date: 20090323
  Transmission Date: 20090719
  Serious: Yes (Hospitalization)
  Sender: FDA-Public Use
  Company Number: None

PATIENT
  Age: 52 Year
  Sex: Female
  Weight: 92.45 kg

DRUGS (20)
  1. CYCLOPHOSPHAMIDE [Suspect]
     Indication: BREAST CANCER
     Dosage: 600MG/M2 EVERY 3 WEEKS IV
     Route: 042
     Dates: start: 20090311, end: 20090311
  2. DOCETAXEL [Suspect]
     Dosage: 75MG/M2 EVERY 3 WEEKS IV
     Route: 042
     Dates: start: 20090311, end: 20090311
  3. DEXAMETHASONE [Concomitant]
  4. ZYRTEC-D 12 HOUR [Concomitant]
  5. NEXIUM [Concomitant]
  6. ALEVE [Concomitant]
  7. GLUCOSOMINE [Concomitant]
  8. CHONDROTIN [Concomitant]
  9. WOMEN'S ONE A DAY [Concomitant]
  10. SLOW FE [Concomitant]
  11. MUCINEX [Concomitant]
  12. HYDROCODONE BITARTRATE + ACETAMINOPHEN [Concomitant]
  13. CHLORD/CLIDI [Concomitant]
  14. APRAZOLAM [Concomitant]
  15. IMODIUM A-D [Concomitant]
  16. TYLENOL (CAPLET) [Concomitant]
  17. ASTELINE SINUS SPRAY [Concomitant]
  18. MAXIFED DMX [Concomitant]
  19. LORAZEPAM [Concomitant]
  20. PROCHLOPERAZINE [Concomitant]

REACTIONS (4)
  - DYSURIA [None]
  - FATIGUE [None]
  - OVARIAN TORSION [None]
  - PYREXIA [None]
